FAERS Safety Report 10086549 (Version 4)
Quarter: 2014Q2

REPORT INFORMATION
  Report Type: Report from Study
  Country: ZA (occurrence: ZA)
  Receive Date: 20140418
  Receipt Date: 20140602
  Transmission Date: 20141212
  Serious: Yes (Other)
  Sender: FDA-Public Use
  Company Number: ZA-ABBVIE-14P-143-1225173-00

PATIENT
  Age: 19 Year
  Sex: Male
  Weight: 63.8 kg

DRUGS (9)
  1. RITONAVIR [Suspect]
     Indication: HIV INFECTION
     Route: 048
     Dates: start: 20060531, end: 20140328
  2. BMS 232832 [Concomitant]
     Indication: HIV INFECTION
     Route: 048
     Dates: start: 20060531, end: 20140328
  3. AZT [Concomitant]
     Indication: HIV INFECTION
     Route: 048
     Dates: start: 20060531, end: 20140328
  4. 3TC [Concomitant]
     Indication: HIV INFECTION
     Route: 048
     Dates: start: 20060531, end: 20140328
  5. ATAZANAVIR [Concomitant]
     Indication: HIV INFECTION
     Route: 048
     Dates: start: 20060531
  6. SPERSALLERG [Concomitant]
     Indication: CONJUNCTIVITIS ALLERGIC
     Route: 047
     Dates: start: 2006
  7. STAMATIL [Concomitant]
     Indication: HIV INFECTION
     Dates: start: 201402, end: 201402
  8. B COMPLEX [Concomitant]
     Indication: PRODUCT USED FOR UNKNOWN INDICATION
     Route: 048
  9. GYCO THYMOL MOUTH WASH [Concomitant]
     Indication: PRODUCT USED FOR UNKNOWN INDICATION

REACTIONS (1)
  - Glycosuria [Not Recovered/Not Resolved]
